FAERS Safety Report 7405853-0 (Version None)
Quarter: 2011Q2

REPORT INFORMATION
  Report Type: 
  Country: None (occurrence: None)
  Receive Date: 20110411
  Receipt Date: 20110405
  Transmission Date: 20111010
  Serious: Yes (Hospitalization)
  Sender: FDA-Public Use
  Company Number: JP-PFIZER INC-2009312319

PATIENT
  Age: 69 Year
  Sex: Male
  Weight: 49 kg

DRUGS (9)
  1. VOLTAREN [Concomitant]
     Indication: TRIGGER FINGER
     Dosage: UNK
     Route: 062
     Dates: start: 20091105
  2. NOVORAPID [Concomitant]
     Indication: TYPE 2 DIABETES MELLITUS
     Dosage: UNK
     Route: 042
     Dates: start: 20070129
  3. LAC B [Concomitant]
     Indication: DIARRHOEA
     Dosage: UNK
     Route: 048
     Dates: start: 20091111
  4. AZOPT [Concomitant]
     Indication: GLAUCOMA
     Dosage: UNK
     Route: 047
     Dates: start: 20071001
  5. LAC B [Concomitant]
  6. XALATAN [Concomitant]
     Indication: GLAUCOMA
     Dosage: UNK
     Route: 047
     Dates: start: 20050427
  7. KERATINAMIN [Concomitant]
     Indication: PALMAR-PLANTAR ERYTHRODYSAESTHESIA SYNDROME
     Dosage: UNK
     Route: 061
     Dates: start: 20091009
  8. SUNITINIB MALATE [Suspect]
     Indication: HEPATIC NEOPLASM MALIGNANT
     Dosage: 25 MG, 1X/DAY
     Route: 048
     Dates: start: 20091009, end: 20091215
  9. URSO 250 [Concomitant]
     Indication: HEPATIC CIRRHOSIS
     Dosage: UNK
     Route: 048
     Dates: start: 20020115

REACTIONS (1)
  - HEPATIC ENCEPHALOPATHY [None]
